FAERS Safety Report 19082110 (Version 4)
Quarter: 2022Q4

REPORT INFORMATION
  Report Type: Report from Study
  Country: CA (occurrence: CA)
  Receive Date: 20210401
  Receipt Date: 20221007
  Transmission Date: 20230113
  Serious: Yes (Other)
  Sender: FDA-Public Use
  Company Number: NVSC2020CA347983

PATIENT
  Age: 48 Year
  Sex: Female

DRUGS (5)
  1. ERELZI [Suspect]
     Active Substance: ETANERCEPT-SZZS
     Indication: Rheumatoid arthritis
     Dosage: 50 MG, QW
     Route: 058
     Dates: start: 20201224
  2. HYDROXYCHLOROQUINE [Concomitant]
     Active Substance: HYDROXYCHLOROQUINE
     Indication: Product used for unknown indication
     Dosage: UNK
     Route: 048
  3. METHOTREXATE [Concomitant]
     Active Substance: METHOTREXATE
     Indication: Product used for unknown indication
     Dosage: UNK
     Route: 048
  4. TYLENOL [Concomitant]
     Active Substance: ACETAMINOPHEN
     Indication: Product used for unknown indication
     Dosage: UNK
     Route: 065
  5. DICLOFENAC [Concomitant]
     Active Substance: DICLOFENAC
     Indication: Product used for unknown indication
     Dosage: UNK
     Route: 048

REACTIONS (19)
  - Haematochezia [Unknown]
  - Crying [Unknown]
  - Illness [Unknown]
  - Fear of injection [Unknown]
  - Weight increased [Unknown]
  - Productive cough [Unknown]
  - Fall [Unknown]
  - Joint injury [Unknown]
  - Stress [Unknown]
  - Increased appetite [Unknown]
  - Dyschezia [Unknown]
  - Frequent bowel movements [Unknown]
  - Pain [Unknown]
  - Injection site pain [Unknown]
  - Injection site bruising [Unknown]
  - Drug ineffective [Unknown]
  - Device occlusion [Unknown]
  - Drug dose omission by device [Unknown]
  - Wrong technique in product usage process [Unknown]

NARRATIVE: CASE EVENT DATE: 20210114
